FAERS Safety Report 6415719-0 (Version None)
Quarter: 2009Q4

REPORT INFORMATION
  Report Type: 
  Country: None (occurrence: None)
  Receive Date: 20091027
  Receipt Date: 20091014
  Transmission Date: 20100525
  Serious: Yes (Other)
  Sender: FDA-Public Use
  Company Number: US-PFIZER INC-2009279376

PATIENT
  Sex: Female
  Weight: 67.12 kg

DRUGS (8)
  1. CHANTIX [Suspect]
     Indication: SMOKING CESSATION THERAPY
     Dosage: 1 MG, 2X/DAY
     Dates: start: 20090801
  2. CYMBALTA [Suspect]
     Dosage: 60 MG, 1X/DAY
  3. DESYREL [Concomitant]
     Dosage: 50 MG, 2X/DAY
  4. PANCRELIPASE [Concomitant]
     Dosage: UNIT DOSE: 32000; FREQUENCY: 3X/DAY,
  5. TRAZODONE [Concomitant]
  6. LORAZEPAM [Concomitant]
  7. CLONAZEPAM [Concomitant]
  8. ENTOCORT EC [Concomitant]
     Indication: COLITIS

REACTIONS (3)
  - DRUG INTERACTION [None]
  - HOMICIDAL IDEATION [None]
  - VIOLENCE-RELATED SYMPTOM [None]
